FAERS Safety Report 15680880 (Version 3)
Quarter: 2019Q1

REPORT INFORMATION
  Report Type: Spontaneous
  Country: US (occurrence: US)
  Receive Date: 20181203
  Receipt Date: 20190308
  Transmission Date: 20190417
  Serious: Yes (Other)
  Sender: FDA-Public Use
  Company Number: US-GLAXOSMITHKLINE-US2018211692

PATIENT
  Age: 25 Year
  Sex: Female

DRUGS (2)
  1. BENLYSTA [Suspect]
     Active Substance: BELIMUMAB
     Indication: PRODUCT USED FOR UNKNOWN INDICATION
     Dosage: UNK
     Route: 042
     Dates: start: 20181003, end: 20190118
  2. GABAPENTIN. [Suspect]
     Active Substance: GABAPENTIN
     Indication: PRODUCT USED FOR UNKNOWN INDICATION
     Dosage: UNK
     Dates: start: 20180509, end: 20180915

REACTIONS (20)
  - Drug ineffective [Unknown]
  - Palatal ulcer [Unknown]
  - Nausea [Recovering/Resolving]
  - Alopecia [Recovering/Resolving]
  - Condition aggravated [Unknown]
  - Papilloma viral infection [Unknown]
  - Fatigue [Unknown]
  - Precancerous cells present [Unknown]
  - Mouth ulceration [Unknown]
  - Headache [Unknown]
  - Paraesthesia [Recovering/Resolving]
  - Pain [Recovering/Resolving]
  - Flat affect [Unknown]
  - Paraesthesia oral [Unknown]
  - Arthralgia [Recovering/Resolving]
  - Chemotherapy [Unknown]
  - Infection reactivation [Unknown]
  - Somnolence [Unknown]
  - Malaise [Recovering/Resolving]
  - Ill-defined disorder [Recovering/Resolving]

NARRATIVE: CASE EVENT DATE: 20180712
